FAERS Safety Report 11073821 (Version 1)
Quarter: 2015Q2

REPORT INFORMATION
  Report Type: Spontaneous
  Country: US (occurrence: US)
  Receive Date: 20150428
  Receipt Date: 20150428
  Transmission Date: 20150821
  Serious: Yes (Hospitalization)
  Sender: FDA-Public Use
  Company Number: PHEH2015US007642

PATIENT
  Age: 10 Year
  Sex: Male

DRUGS (3)
  1. ILARIS [Suspect]
     Active Substance: CANAKINUMAB
     Indication: JUVENILE IDIOPATHIC ARTHRITIS
     Dosage: EVERY 4 WEEKS
     Route: 065
  2. ILARIS [Suspect]
     Active Substance: CANAKINUMAB
     Dosage: EVERY 8 WEEKS
     Route: 065
     Dates: start: 20150319
  3. ILARIS [Suspect]
     Active Substance: CANAKINUMAB
     Dosage: EVERY 8 WEEKS
     Route: 065

REACTIONS (4)
  - Rash [Unknown]
  - Histiocytosis haematophagic [Unknown]
  - General physical health deterioration [Unknown]
  - Otitis media [Recovered/Resolved]

NARRATIVE: CASE EVENT DATE: 201503
